FAERS Safety Report 16573977 (Version 1)
Quarter: 2019Q3

REPORT INFORMATION
  Report Type: Spontaneous
  Country: FR (occurrence: FR)
  Receive Date: 20190715
  Receipt Date: 20190715
  Transmission Date: 20191004
  Serious: Yes (Hospitalization, Other)
  Sender: FDA-Public Use
  Company Number: FR-009507513-1907FRA005225

PATIENT
  Age: 72 Year
  Sex: Male
  Weight: 77 kg

DRUGS (1)
  1. KEYTRUDA [Suspect]
     Active Substance: PEMBROLIZUMAB
     Indication: METASTATIC MALIGNANT MELANOMA
     Dosage: 2 MILLIGRAM/KILOGRAM, CYCLICAL
     Route: 042
     Dates: start: 20180223, end: 20181119

REACTIONS (5)
  - Onychomadesis [Not Recovered/Not Resolved]
  - Skin toxicity [Not Recovered/Not Resolved]
  - Hyponatraemia [Recovered/Resolved]
  - Adrenal insufficiency [Recovering/Resolving]
  - Confusional state [Recovered/Resolved]

NARRATIVE: CASE EVENT DATE: 20180801
